FAERS Safety Report 18952308 (Version 1)
Quarter: 2021Q1

REPORT INFORMATION
  Report Type: Spontaneous
  Country: US (occurrence: US)
  Receive Date: 20210301
  Receipt Date: 20210301
  Transmission Date: 20210420
  Serious: Yes (Life-Threatening, Hospitalization, Other)
  Sender: FDA-Public Use
  Company Number: US-HIKMA PHARMACEUTICALS USA INC.-US-H14001-21-53723

PATIENT
  Age: 45 Year
  Sex: Male

DRUGS (1)
  1. PREDNISONE. [Suspect]
     Active Substance: PREDNISONE
     Indication: GLOMERULONEPHRITIS MEMBRANOUS
     Dosage: UNKNOWN
     Route: 065

REACTIONS (7)
  - Hypoalbuminaemia [Recovered/Resolved]
  - Klebsiella bacteraemia [Recovering/Resolving]
  - Escherichia bacteraemia [Recovering/Resolving]
  - Disseminated strongyloidiasis [Recovering/Resolving]
  - Strongyloidiasis [Recovering/Resolving]
  - Pulmonary haemorrhage [Recovering/Resolving]
  - Nephrotic syndrome [Recovered/Resolved]
